FAERS Safety Report 8872071 (Version 2)
Quarter: 2012Q4

REPORT INFORMATION
  Report Type: 
  Country: JP (occurrence: JP)
  Receive Date: 20121027
  Receipt Date: 20121122
  Transmission Date: 20130627
  Serious: Yes (Hospitalization)
  Sender: FDA-Public Use
  Company Number: JP-MERCK-1210JPN009365

PATIENT
  Age: 80 Year
  Sex: Female

DRUGS (8)
  1. BONALON [Suspect]
     Indication: OSTEOPOROSIS
     Dosage: 35 mg, qw
     Route: 048
     Dates: start: 20041210, end: 201110
  2. AMLODIN (AMLODIPINE BESYLATE) [Concomitant]
     Dosage: 5 mg, qd
     Route: 048
     Dates: end: 201209
  3. LASIX (FUROSEMIDE) [Concomitant]
     Dosage: 20 mg, qd
     Route: 048
  4. WARFARIN [Concomitant]
     Dosage: 1 mg, qd
  5. BLOPRESS [Concomitant]
     Dosage: 4 mg, qd
     Route: 048
     Dates: end: 201207
  6. BEZAFIBRATE [Concomitant]
     Dosage: 400 mg, qd
     Route: 048
     Dates: end: 201111
  7. GASMOTIN [Concomitant]
     Dosage: 15 mg, qd
     Route: 048
  8. LASOPRAN [Concomitant]
     Dosage: 15 mg, qd

REACTIONS (1)
  - Osteonecrosis of jaw [Recovered/Resolved]
